FAERS Safety Report 11288802 (Version 1)
Quarter: 2015Q3

REPORT INFORMATION
  Report Type: Spontaneous
  Country: US (occurrence: US)
  Receive Date: 20150721
  Receipt Date: 20150721
  Transmission Date: 20151125
  Serious: No
  Sender: FDA-Public Use
  Company Number: US-UNITED THERAPEUTICS-UNT-2014-012239

PATIENT
  Sex: Female
  Weight: 69.84 kg

DRUGS (1)
  1. REMODULIN [Suspect]
     Active Substance: TREPROSTINIL
     Indication: PULMONARY HYPERTENSION
     Dosage: 0.011 ?G/KG/MIN, CONTINUING
     Route: 041
     Dates: start: 20140915

REACTIONS (7)
  - Pain in jaw [Not Recovered/Not Resolved]
  - Chest pain [Unknown]
  - Headache [Not Recovered/Not Resolved]
  - Musculoskeletal pain [Not Recovered/Not Resolved]
  - Gastrooesophageal reflux disease [Unknown]
  - Dermatitis contact [Unknown]
  - Injection site rash [Unknown]

NARRATIVE: CASE EVENT DATE: 2014
